FAERS Safety Report 22258147 (Version 1)
Quarter: 2023Q2

REPORT INFORMATION
  Report Type: Spontaneous
  Country: CL (occurrence: CL)
  Receive Date: 20230427
  Receipt Date: 20230427
  Transmission Date: 20230721
  Serious: Yes (Death, Hospitalization, Other)
  Sender: FDA-Public Use
  Company Number: CL-BAXTER-2023BAX019496

PATIENT
  Age: 75 Year
  Sex: Male

DRUGS (1)
  1. DIANEAL PD-2 WITH DEXTROSE [Suspect]
     Active Substance: CALCIUM CHLORIDE\DEXTROSE\MAGNESIUM CHLORIDE\SODIUM CHLORIDE\SODIUM LACTATE
     Indication: Peritoneal dialysis
     Route: 033

REACTIONS (5)
  - Multiple organ dysfunction syndrome [Fatal]
  - Peripheral ischaemia [Unknown]
  - Intestinal perforation [Unknown]
  - Septic shock [Unknown]
  - Abdominal sepsis [Unknown]
